FAERS Safety Report 5346734-6 (Version None)
Quarter: 2007Q2

REPORT INFORMATION
  Report Type: 
  Country: None (occurrence: None)
  Receive Date: 20070604
  Receipt Date: 20070523
  Transmission Date: 20071010
  Serious: Yes (Life-Threatening)
  Sender: FDA-Public Use
  Company Number: 2007AL002109

PATIENT
  Age: 64 Year
  Sex: Male

DRUGS (7)
  1. GABAPENTIN [Suspect]
     Indication: PAIN
     Dosage: 600 MG; QID; PO
     Route: 048
     Dates: start: 20000504, end: 20070329
  2. LISINOPRIL [Concomitant]
  3. ACETYLSALICYLIC ACID SRT [Concomitant]
  4. SIMVASTATIN [Concomitant]
  5. LANSOPRAZOLE [Concomitant]
  6. BISOPROLOL FUMARATE [Concomitant]
  7. ISOSORBIDE MONONITRATE [Concomitant]

REACTIONS (8)
  - ACUTE CORONARY SYNDROME [None]
  - BLOOD PRESSURE FLUCTUATION [None]
  - DIZZINESS [None]
  - HYPERTENSION [None]
  - HYPOTENSION [None]
  - MEMORY IMPAIRMENT [None]
  - ROAD TRAFFIC ACCIDENT [None]
  - SYNCOPE [None]
